FAERS Safety Report 8552207-X (Version None)
Quarter: 2012Q3

REPORT INFORMATION
  Report Type: 
  Country: None (occurrence: None)
  Receive Date: 20120731
  Receipt Date: 20120720
  Transmission Date: 20120928
  Serious: No
  Sender: FDA-Public Use
  Company Number: US-BIOGENIDEC-2012BI026661

PATIENT
  Sex: Female

DRUGS (6)
  1. LYRICA [Concomitant]
     Indication: PAIN
  2. AVONEX [Suspect]
     Indication: MULTIPLE SCLEROSIS
     Route: 030
     Dates: start: 20120711, end: 20120711
  3. AVONEX [Suspect]
     Route: 030
  4. MECLIZINE [Concomitant]
     Indication: DIZZINESS
  5. AVONEX [Suspect]
     Route: 030
     Dates: start: 20120718, end: 20120718
  6. BACLOFEN [Concomitant]
     Indication: MUSCLE SPASMS

REACTIONS (3)
  - TREMOR [None]
  - ASTHENIA [None]
  - DIZZINESS [None]
